FAERS Safety Report 21753586 (Version 1)
Quarter: 2022Q4

REPORT INFORMATION
  Report Type: Report from Study
  Country: US (occurrence: US)
  Receive Date: 20221220
  Receipt Date: 20221220
  Transmission Date: 20230113
  Serious: Yes (Other)
  Sender: FDA-Public Use
  Company Number: US-UCBSA-2022071015

PATIENT
  Sex: Male

DRUGS (23)
  1. CERTOLIZUMAB PEGOL [Suspect]
     Active Substance: CERTOLIZUMAB PEGOL
     Indication: Rheumatoid arthritis
     Dosage: 200 MILLIGRAM, EV 2 WEEKS(QOW)
  2. IBUPROFEN [Concomitant]
     Active Substance: IBUPROFEN
     Indication: Product used for unknown indication
     Dosage: 800 MILLIGRAM QHS, PRN
  3. IBUPROFEN [Concomitant]
     Active Substance: IBUPROFEN
     Dosage: 1 GRAM, 2X/DAY (BID)
  4. HYDROXYCHLOROQUINE SULFATE [Concomitant]
     Active Substance: HYDROXYCHLOROQUINE SULFATE
     Indication: Product used for unknown indication
     Dosage: 200 MILLIGRAM, 2X/DAY (BID)
     Route: 048
  5. DICLOFENAC [Concomitant]
     Active Substance: DICLOFENAC
     Indication: Product used for unknown indication
     Dosage: UNK
     Dates: start: 202102
  6. SULFASALAZINE [Concomitant]
     Active Substance: SULFASALAZINE
     Indication: Product used for unknown indication
     Dosage: 500 MILLIGRAM
     Route: 048
  7. SULFASALAZINE [Concomitant]
     Active Substance: SULFASALAZINE
     Dosage: 1.5 GRAM, 2X/DAY (BID)
     Route: 048
     Dates: start: 20210603
  8. PRED [PREDNISONE] [Concomitant]
     Indication: Dactylitis
     Dosage: 10 MILLIGRAM, DAILY
     Route: 048
  9. PRED [PREDNISONE] [Concomitant]
     Dosage: 2.5 MILLIGRAM, 2X/DAY (BID)
     Route: 048
  10. LEFLUNOMIDE [Concomitant]
     Active Substance: LEFLUNOMIDE
     Indication: Neuropathy peripheral
     Dosage: 10 MILLIGRAM, DAILY
     Route: 048
     Dates: start: 202208
  11. LEFLUNOMIDE [Concomitant]
     Active Substance: LEFLUNOMIDE
     Dosage: 20 MILLIGRAM, DAILY
     Route: 048
     Dates: start: 202208
  12. METHOTREXATE SODIUM [Concomitant]
     Active Substance: METHOTREXATE SODIUM
     Indication: Hypertransaminasaemia
     Dosage: 4 TO 6 TAB, WEEKLY (QW). 0.4CC/0.3CC
  13. CELEBREX [Concomitant]
     Active Substance: CELECOXIB
     Indication: Product used for unknown indication
     Dosage: 200 MILLIGRAM, DAILY
  14. PNEUMOCOCCAL VACCINE POLYVALENT [Concomitant]
     Active Substance: PNEUMOCOCCAL VACCINE POLYVALENT
     Indication: Pneumococcal infection
     Dosage: 0.5 MILLILITER, ONCE
     Route: 030
     Dates: start: 20211013
  15. PREVNAR 13 [Concomitant]
     Active Substance: PNEUMOCOCCAL 13-VALENT CONJUGATE VACCINE
     Indication: Pneumococcal infection
     Dosage: 0.5 MILLILITER, ONCE
     Route: 030
  16. COVID-19 VACCINE MRNA (MRNA 1273) [Concomitant]
     Indication: COVID-19
     Dosage: 0.5 MILLILITER
     Dates: start: 20210127, end: 20210127
  17. COVID-19 VACCINE MRNA (MRNA 1273) [Concomitant]
     Dosage: 0.5 MILLILITER
     Dates: start: 20210301, end: 20210301
  18. COVID-19 VACCINE MRNA (MRNA 1273) [Concomitant]
     Dosage: 0.5 MILLILITER
     Dates: start: 20210824, end: 20210824
  19. COVID-19 VACCINE MRNA (MRNA 1273) [Concomitant]
     Dosage: 0.5 MILLILITER
     Dates: start: 20220420, end: 20220420
  20. TETANUS TOXOID, REDUCED DIPHTHERIA TOXOID AND ACELLULAR PERTUSSIS VACC [Concomitant]
     Active Substance: TETANUS TOXOID, REDUCED DIPHTHERIA TOXOID AND ACELLULAR PERTUSSIS VACCINE ADSORBED, TDAP
     Indication: Tetanus
     Dosage: 0.5 MILLILITER
     Dates: start: 20211013
  21. TETANUS TOXOID, REDUCED DIPHTHERIA TOXOID AND ACELLULAR PERTUSSIS VACC [Concomitant]
     Active Substance: TETANUS TOXOID, REDUCED DIPHTHERIA TOXOID AND ACELLULAR PERTUSSIS VACCINE ADSORBED, TDAP
     Indication: Diphtheria
  22. TETANUS TOXOID, REDUCED DIPHTHERIA TOXOID AND ACELLULAR PERTUSSIS VACC [Concomitant]
     Active Substance: TETANUS TOXOID, REDUCED DIPHTHERIA TOXOID AND ACELLULAR PERTUSSIS VACCINE ADSORBED, TDAP
     Indication: Pertussis
  23. FLUOROMETHOLONE [Concomitant]
     Active Substance: FLUOROMETHOLONE
     Indication: Ulcerative keratitis
     Dosage: UNK USING MOST DAYS (DROPS)

REACTIONS (7)
  - Rheumatoid arthritis [Not Recovered/Not Resolved]
  - Ulcerative keratitis [Not Recovered/Not Resolved]
  - Serous retinopathy [Not Recovered/Not Resolved]
  - Neuropathy peripheral [Not Recovered/Not Resolved]
  - Stress [Not Recovered/Not Resolved]
  - Exposure to SARS-CoV-2 [Unknown]
  - Drug ineffective [Unknown]

NARRATIVE: CASE EVENT DATE: 20220101
